FAERS Safety Report 6717095-2 (Version None)
Quarter: 2010Q2

REPORT INFORMATION
  Report Type: 
  Country: None (occurrence: None)
  Receive Date: 20100510
  Receipt Date: 20100428
  Transmission Date: 20101027
  Serious: Yes (Other)
  Sender: FDA-Public Use
  Company Number: JP-NAPPMUNDI-MAG-2010-0001206

PATIENT
  Age: 81 Year

DRUGS (6)
  1. OXYCODONE HYDROCHLORIDE [Suspect]
     Indication: CANCER PAIN
     Dosage: UNK
     Route: 065
  2. NOVAMIN                            /00013301/ [Suspect]
     Indication: NAUSEA
     Route: 065
  3. SERENACE [Suspect]
     Indication: INSOMNIA
     Route: 065
  4. SERENACE [Suspect]
     Indication: DECREASED APPETITE
  5. SERENACE [Suspect]
     Indication: NAUSEA
  6. ETIZOLAM [Concomitant]
     Indication: DRUG USE FOR UNKNOWN INDICATION
     Route: 065

REACTIONS (2)
  - AKATHISIA [None]
  - NEUROLEPTIC MALIGNANT SYNDROME [None]
